FAERS Safety Report 7422095-3 (Version None)
Quarter: 2011Q2

REPORT INFORMATION
  Report Type: 
  Country: None (occurrence: None)
  Receive Date: 20110418
  Receipt Date: 20110411
  Transmission Date: 20111010
  Serious: Yes (Death, Life-Threatening, Hospitalization)
  Sender: FDA-Public Use
  Company Number: FR-MERCK-1104FRA00055

PATIENT
  Age: 36 Year
  Sex: Male

DRUGS (26)
  1. EMEND [Suspect]
     Route: 048
     Dates: start: 20091109, end: 20091111
  2. CIPROFLOXACIN HCL [Suspect]
     Route: 048
     Dates: start: 20091101
  3. AMITRIPTYLINE HCL [Suspect]
     Route: 048
     Dates: start: 20091109, end: 20091111
  4. HALOPERIDOL [Suspect]
     Indication: NAUSEA
     Route: 048
     Dates: start: 20091112, end: 20091113
  5. TRAMADOL HCL [Suspect]
     Indication: PAIN
     Route: 048
     Dates: start: 20091113, end: 20091113
  6. CARBOPLATIN [Suspect]
     Indication: EXTRAGONADAL PRIMARY GERM CELL TUMOUR MIXED STAGE I
     Route: 042
     Dates: start: 20091109, end: 20091111
  7. AMITRIPTYLINE HCL [Suspect]
     Route: 048
     Dates: start: 20091110, end: 20091111
  8. MORPHINE SULFATE [Concomitant]
     Route: 065
     Dates: start: 20091110, end: 20091113
  9. ACETAMINOPHEN [Concomitant]
     Route: 065
     Dates: start: 20091110, end: 20091113
  10. HYDROCORTISONE [Concomitant]
     Route: 065
     Dates: start: 20091113, end: 20091113
  11. OXYCODONE HYDROCHLORIDE [Concomitant]
     Route: 065
     Dates: start: 20091109, end: 20091110
  12. METRONIDAZOLE [Concomitant]
     Route: 065
  13. FLUCONAZOLE [Suspect]
     Route: 048
     Dates: start: 20091101
  14. DEXCHLORPHENIRAMINE MALEATE [Suspect]
     Indication: PREMEDICATION
     Route: 042
     Dates: start: 20091113, end: 20091113
  15. BROMAZEPAM [Concomitant]
     Route: 065
     Dates: start: 20091109, end: 20091113
  16. ONDANSETRON HYDROCHLORIDE [Concomitant]
     Route: 065
     Dates: start: 20091110, end: 20091113
  17. TRAMADOL HCL [Suspect]
     Route: 048
     Dates: start: 20091113, end: 20091113
  18. OXYCODONE HYDROCHLORIDE [Concomitant]
     Route: 065
     Dates: start: 20091109, end: 20091113
  19. LIDOCAINE [Concomitant]
     Route: 065
     Dates: start: 20091110, end: 20091111
  20. METOCLOPRAMIDE HYDROCHLORIDE [Concomitant]
     Route: 065
     Dates: start: 20091110, end: 20091113
  21. FILGRASTIM [Concomitant]
     Route: 065
     Dates: start: 20091111, end: 20091113
  22. AMOXICILLIN AND CLAVULANATE POTASSIUM [Suspect]
     Route: 048
     Dates: start: 20091117, end: 20091121
  23. EMEND [Suspect]
     Route: 048
     Dates: start: 20091110, end: 20091113
  24. ETOPOSIDE [Suspect]
     Indication: EXTRAGONADAL PRIMARY GERM CELL TUMOUR MIXED STAGE I
     Route: 042
     Dates: start: 20091110, end: 20091111
  25. GABAPENTIN [Suspect]
     Route: 048
     Dates: start: 20091109, end: 20091113
  26. DEXTROSE AND POTASSIUM CHLORIDE AND SODIUM CHLORIDE [Concomitant]
     Route: 065
     Dates: start: 20091109, end: 20091113

REACTIONS (5)
  - FEBRILE BONE MARROW APLASIA [None]
  - OVERDOSE [None]
  - INCORRECT DRUG ADMINISTRATION DURATION [None]
  - INAPPROPRIATE SCHEDULE OF DRUG ADMINISTRATION [None]
  - ILEITIS [None]
